FAERS Safety Report 25383342 (Version 1)
Quarter: 2025Q2

REPORT INFORMATION
  Report Type: Spontaneous
  Country: ES (occurrence: ES)
  Receive Date: 20250602
  Receipt Date: 20250602
  Transmission Date: 20250717
  Serious: Yes (Other)
  Sender: GLAXOSMITHKLINE
  Company Number: None

PATIENT

DRUGS (4)
  1. ALBUTEROL [Suspect]
     Active Substance: ALBUTEROL
     Indication: Asthmatic crisis
     Route: 055
     Dates: start: 20250409
  2. TIOTROPIUM BROMIDE MONOHYDRATE [Concomitant]
     Active Substance: TIOTROPIUM BROMIDE MONOHYDRATE
     Indication: Asthmatic crisis
     Route: 055
     Dates: start: 20250409
  3. MAGNESIUM SULFATE HEPTAHYDRATE [Concomitant]
     Active Substance: MAGNESIUM SULFATE HEPTAHYDRATE
     Indication: Asthmatic crisis
     Route: 042
     Dates: start: 20250409
  4. BUDESONIDE [Concomitant]
     Active Substance: BUDESONIDE
     Indication: Asthmatic crisis
     Route: 055
     Dates: start: 20250409

REACTIONS (2)
  - Lactic acidosis [Recovered/Resolved]
  - Hypokalaemia [Recovered/Resolved]

NARRATIVE: CASE EVENT DATE: 20250409
